FAERS Safety Report 17850720 (Version 3)
Quarter: 2020Q2

REPORT INFORMATION
  Report Type: Spontaneous
  Country: GB (occurrence: GB)
  Receive Date: 20200602
  Receipt Date: 20200629
  Transmission Date: 20200714
  Serious: Yes (Other)
  Sender: FDA-Public Use
  Company Number: GB-SA-2020SA137795

PATIENT

DRUGS (1)
  1. THYMOGLOBULIN [Suspect]
     Active Substance: LAPINE T-LYMPHOCYTE IMMUNE GLOBULIN
     Dosage: 2.5 MG/KG
     Route: 042

REACTIONS (6)
  - Rash [Unknown]
  - Acute kidney injury [Unknown]
  - Liver function test abnormal [Unknown]
  - Anal abscess [Unknown]
  - Nausea [Unknown]
  - Drug hypersensitivity [Unknown]
